FAERS Safety Report 7023141-1 (Version None)
Quarter: 2010Q3

REPORT INFORMATION
  Report Type: 
  Country: None (occurrence: None)
  Receive Date: 20100930
  Receipt Date: 20100924
  Transmission Date: 20110219
  Serious: Yes (Other)
  Sender: FDA-Public Use
  Company Number: CHPA2010US15190

PATIENT
  Sex: Female

DRUGS (4)
  1. MAALOX ADV MAXIMUM STRENGTH ANTACID/ANTIGAS (NCH) [Suspect]
     Indication: GASTRIC ULCER
     Dosage: 3 TSP, BID
     Route: 048
  2. MAALOX ADV MAXIMUM STRENGTH ANTACID/ANTIGAS (NCH) [Suspect]
     Indication: DYSPEPSIA
     Dosage: 3 TSP, BID
     Route: 048
  3. MAALOX ADV MAXIMUM STRENGTH ANTACID/ANTIGAS (NCH) [Suspect]
     Indication: ABDOMINAL DISTENSION
  4. MAALOX ADV MAXIMUM STRENGTH ANTACID/ANTIGAS (NCH) [Suspect]
     Indication: NAUSEA

REACTIONS (4)
  - ABDOMINAL DISCOMFORT [None]
  - COELIAC DISEASE [None]
  - INCORRECT DOSE ADMINISTERED [None]
  - OFF LABEL USE [None]
